FAERS Safety Report 10668002 (Version 6)
Quarter: 2015Q1

REPORT INFORMATION
  Report Type: Spontaneous
  Country: US (occurrence: US)
  Receive Date: 20141222
  Receipt Date: 20150318
  Transmission Date: 20150720
  Serious: No
  Sender: FDA-Public Use
  Company Number: US-GLAXOSMITHKLINE-A1085526A

PATIENT

DRUGS (12)
  1. SORIATANE [Suspect]
     Active Substance: ACITRETIN
     Dosage: 25 MG, QD
     Route: 048
  2. TAMSULOSIN [Concomitant]
     Active Substance: TAMSULOSIN
  3. PROAIR HFA [Concomitant]
     Active Substance: ALBUTEROL SULFATE
  4. CYCLOBENZAPRINE [Concomitant]
     Active Substance: CYCLOBENZAPRINE
  5. SORIATANE [Suspect]
     Active Substance: ACITRETIN
     Indication: PSORIASIS
     Dosage: 50 MG, QD
     Route: 048
     Dates: start: 20140709
  6. GABAPENTIN. [Concomitant]
     Active Substance: GABAPENTIN
  7. SPIRIVA [Concomitant]
     Active Substance: TIOTROPIUM BROMIDE MONOHYDRATE
  8. SYMBICORT [Concomitant]
     Active Substance: BUDESONIDE\FORMOTEROL FUMARATE DIHYDRATE
  9. PHOTOTHERAPY [Concomitant]
  10. CLOBETASOL [Concomitant]
     Active Substance: CLOBETASOL
  11. HYDROXYZINE [Concomitant]
     Active Substance: HYDROXYZINE\HYDROXYZINE HYDROCHLORIDE
  12. OMEPRAZOLE. [Concomitant]
     Active Substance: OMEPRAZOLE

REACTIONS (7)
  - Skin exfoliation [Recovering/Resolving]
  - Nail disorder [Recovering/Resolving]
  - Nail discomfort [Unknown]
  - Onychalgia [Unknown]
  - Onychomadesis [Unknown]
  - Drug dose omission [Unknown]
  - Lip disorder [Unknown]

NARRATIVE: CASE EVENT DATE: 201407
